FAERS Safety Report 25040482 (Version 1)
Quarter: 2025Q1

REPORT INFORMATION
  Report Type: Spontaneous
  Country: FR (occurrence: FR)
  Receive Date: 20250305
  Receipt Date: 20250305
  Transmission Date: 20250409
  Serious: Yes (Hospitalization, Other)
  Sender: AUROBINDO
  Company Number: FR-AFSSAPS-CN2025000186

PATIENT
  Age: 18 Year
  Sex: Male
  Weight: 85 kg

DRUGS (1)
  1. ACETAMINOPHEN [Suspect]
     Active Substance: ACETAMINOPHEN
     Indication: Product used for unknown indication
     Route: 048
     Dates: start: 20250204, end: 20250204

REACTIONS (5)
  - Hypokalaemia [Not Recovered/Not Resolved]
  - Poisoning deliberate [Recovered/Resolved]
  - Hypoprothrombinaemia [Not Recovered/Not Resolved]
  - Hypertransaminasaemia [Not Recovered/Not Resolved]
  - Blood alkaline phosphatase increased [Recovered/Resolved]

NARRATIVE: CASE EVENT DATE: 20250204
